FAERS Safety Report 19586429 (Version 1)
Quarter: 2021Q3

REPORT INFORMATION
  Report Type: Report from Study
  Country: US (occurrence: US)
  Receive Date: 20210720
  Receipt Date: 20210720
  Transmission Date: 20211014
  Serious: Yes (Hospitalization, Other)
  Sender: FDA-Public Use
  Company Number: US-TAKEDA-US-001507

PATIENT
  Age: 47 Year
  Sex: Male
  Weight: 58.5 kg

DRUGS (12)
  1. TEDUGLUTIDE [Suspect]
     Active Substance: TEDUGLUTIDE
     Indication: SHORT-BOWEL SYNDROME
     Dosage: 2.5 MG, 1X/DAY:QD
     Dates: start: 20131203
  2. TEDUGLUTIDE [Suspect]
     Active Substance: TEDUGLUTIDE
     Indication: SHORT-BOWEL SYNDROME
     Dosage: 2.5 MG, 1X/DAY:QD
     Dates: start: 20131203
  3. RIFAMPIN. [Concomitant]
     Active Substance: RIFAMPIN
     Indication: VASCULAR DEVICE INFECTION
     Dosage: 600 MILLIGRAM
     Route: 048
     Dates: start: 20120217
  4. NYSTATIN. [Concomitant]
     Active Substance: NYSTATIN
     Indication: ANTIFUNGAL PROPHYLAXIS
     Dosage: 1 DOSAGE FORM
     Route: 061
     Dates: start: 20111116
  5. TEDUGLUTIDE [Suspect]
     Active Substance: TEDUGLUTIDE
     Indication: SHORT-BOWEL SYNDROME
     Dosage: 2.5 MG, 1X/DAY:QD
     Dates: start: 20131203
  6. TEDUGLUTIDE [Suspect]
     Active Substance: TEDUGLUTIDE
     Indication: SHORT-BOWEL SYNDROME
     Dosage: 2.5 MG, 1X/DAY:QD
     Dates: start: 20131203
  7. DAPTOMYCIN. [Concomitant]
     Active Substance: DAPTOMYCIN
     Indication: BACTERAEMIA
     Dosage: 410 MILLIGRAM
     Route: 042
     Dates: start: 20080827
  8. HYDROMORPHONE [Concomitant]
     Active Substance: HYDROMORPHONE
     Indication: CROHN^S DISEASE
     Dosage: [4 MG PRN]
     Route: 048
     Dates: start: 20090812
  9. FENTANYL. [Concomitant]
     Active Substance: FENTANYL
     Indication: CROHN^S DISEASE
     Dosage: [1 UNIT, EVERY THREE DAYS]
     Route: 062
     Dates: start: 2008
  10. PN/IV [Concomitant]
     Indication: SHORT-BOWEL SYNDROME
     Dosage: UNK, OTHER
     Route: 042
     Dates: start: 20131126
  11. LOVENOX [Concomitant]
     Active Substance: ENOXAPARIN SODIUM
     Indication: ANTICOAGULANT THERAPY
     Dosage: 60 MILLIGRAM
     Route: 058
     Dates: start: 20090812
  12. VITAMIN B12 [Concomitant]
     Active Substance: CYANOCOBALAMIN
     Indication: SHORT-BOWEL SYNDROME
     Dosage: [1000 UNITS, ONCE A MONTH]
     Route: 058
     Dates: start: 2011

REACTIONS (1)
  - Device related bacteraemia [Recovered/Resolved]

NARRATIVE: CASE EVENT DATE: 20140114
